FAERS Safety Report 6596173-5 (Version None)
Quarter: 2010Q1

REPORT INFORMATION
  Report Type: 
  Country: None (occurrence: None)
  Receive Date: 20100223
  Receipt Date: 20100215
  Transmission Date: 20100710
  Serious: Yes (Hospitalization)
  Sender: FDA-Public Use
  Company Number: US-JNJFOC-20100205623

PATIENT
  Sex: Female
  Weight: 36.4 kg

DRUGS (5)
  1. INFLIXIMAB [Suspect]
     Indication: INFLAMMATORY BOWEL DISEASE
     Route: 042
  2. BUDESONIDE [Concomitant]
  3. AZATHIOPRINE [Concomitant]
  4. PREDNISONE [Concomitant]
  5. 5-ASA [Concomitant]

REACTIONS (2)
  - MEDICAL DEVICE COMPLICATION [None]
  - WEIGHT DECREASED [None]
